FAERS Safety Report 7854733-5 (Version None)
Quarter: 2011Q4

REPORT INFORMATION
  Report Type: 
  Country: None (occurrence: None)
  Receive Date: 20111026
  Receipt Date: 20110808
  Transmission Date: 20120403
  Serious: No
  Sender: FDA-Public Use
  Company Number: US-MUTUAL PHARMACEUTICAL COMPANY, INC.-CLCY20110100

PATIENT
  Sex: Male
  Weight: 102.15 kg

DRUGS (10)
  1. COLCHICINE [Suspect]
     Indication: GOUT
     Route: 048
     Dates: start: 20010101
  2. TAMSULOSIN HCL [Concomitant]
     Indication: PROSTATOMEGALY
     Route: 048
  3. COLCRYS [Suspect]
     Indication: GOUT
     Route: 048
     Dates: end: 20110101
  4. LIPITOR [Concomitant]
     Indication: BLOOD CHOLESTEROL INCREASED
     Route: 048
  5. BYETTA [Concomitant]
     Indication: TYPE 2 DIABETES MELLITUS
     Route: 065
  6. TRIBENSOR [Concomitant]
     Indication: HYPERTENSION
     Route: 065
     Dates: start: 20110401
  7. ULORIC [Suspect]
     Indication: GOUT
     Route: 048
     Dates: start: 20110113
  8. COREG [Concomitant]
     Indication: HYPERTENSION
     Route: 048
  9. ASPIRIN [Concomitant]
     Indication: ISCHAEMIC HEART DISEASE PROPHYLAXIS
     Route: 048
  10. METFORMIN HCL [Concomitant]
     Indication: TYPE 2 DIABETES MELLITUS
     Route: 048

REACTIONS (1)
  - DIARRHOEA [None]
